FAERS Safety Report 17055635 (Version 4)
Quarter: 2020Q4

REPORT INFORMATION
  Report Type: Spontaneous
  Country: JP (occurrence: JP)
  Receive Date: 20191120
  Receipt Date: 20201216
  Transmission Date: 20210113
  Serious: Yes (Hospitalization, Disabling, Other)
  Sender: FDA-Public Use
  Company Number: JP-TAKEDA-2019TJP018567

PATIENT
  Age: 72 Year
  Sex: Female
  Weight: 55 kg

DRUGS (11)
  1. CELESTAMINE [Concomitant]
     Active Substance: BETAMETHASONE\DEXCHLORPHENIRAMINE MALEATE
     Indication: EPISTAXIS
     Dosage: 1 DOSAGE FORM, QD
     Route: 048
     Dates: start: 20190807, end: 20191008
  2. PREDNISOLONE. [Concomitant]
     Active Substance: PREDNISOLONE
     Indication: COLITIS ULCERATIVE
     Dosage: 5 MILLIGRAM, QD
     Route: 048
     Dates: start: 20181120
  3. SULFASALAZINE. [Concomitant]
     Active Substance: SULFASALAZINE
     Indication: COLITIS ULCERATIVE
     Dosage: 1000 MILLIGRAM, TID
     Route: 048
  4. ADONA                              /00056903/ [Concomitant]
     Active Substance: CARBAZOCHROME SODIUM SULFONATE
     Indication: EPISTAXIS
     Dosage: 30 MILLIGRAM, BID
     Route: 048
     Dates: start: 20190625, end: 20191119
  5. ENTYVIO [Suspect]
     Active Substance: VEDOLIZUMAB
     Indication: COLITIS ULCERATIVE
     Dosage: 300 MILLIGRAM, Q8WEEKS
     Route: 041
     Dates: start: 20190708
  6. MIYA-BM [Concomitant]
     Active Substance: CLOSTRIDIUM BUTYRICUM SPORES STRAIN M-55
     Indication: COLITIS ULCERATIVE
     Dosage: 1.66 GRAM, TID
     Route: 048
  7. RINDERON                           /00008501/ [Concomitant]
     Active Substance: BETAMETHASONE
     Indication: COLITIS ULCERATIVE
     Dosage: 10 MILLIGRAM, QD
     Route: 065
     Dates: start: 20150930
  8. AMBROXOL HYDROCHLORIDE [Concomitant]
     Active Substance: AMBROXOL HYDROCHLORIDE
     Indication: EPISTAXIS
     Dosage: 45 MILLIGRAM, QD
     Route: 048
     Dates: start: 20190603, end: 20190718
  9. RABEPRAZOLE SODIUM. [Concomitant]
     Active Substance: RABEPRAZOLE SODIUM
     Indication: COLITIS ULCERATIVE
     Dosage: 10 MILLIGRAM, QD
     Route: 048
     Dates: start: 20140827
  10. LOPERAMIDE                         /00384302/ [Concomitant]
     Active Substance: LOPERAMIDE HYDROCHLORIDE
     Indication: COLITIS ULCERATIVE
     Dosage: 1 MILLIGRAM, QD
     Route: 048
     Dates: start: 20190701, end: 20190722
  11. DAIPHEN [Concomitant]
     Active Substance: SULFAMETHOXAZOLE\TRIMETHOPRIM
     Indication: COLITIS ULCERATIVE
     Dosage: 1 DOSAGE FORM, 3/WEEK
     Route: 048
     Dates: start: 20190920

REACTIONS (4)
  - Cerebral infarction [Recovering/Resolving]
  - Paranasal sinus neoplasm [Not Recovered/Not Resolved]
  - Oedema peripheral [Recovering/Resolving]
  - Face oedema [Recovering/Resolving]

NARRATIVE: CASE EVENT DATE: 20190807
